FAERS Safety Report 7240287-3 (Version None)
Quarter: 2011Q1

REPORT INFORMATION
  Report Type: 
  Country: None (occurrence: None)
  Receive Date: 20110124
  Receipt Date: 20110114
  Transmission Date: 20110831
  Serious: Yes (Hospitalization, Other)
  Sender: FDA-Public Use
  Company Number: PHFR2010GB05438

PATIENT
  Sex: Male

DRUGS (4)
  1. QUETIAPINE [Concomitant]
     Dosage: UNK MG, UNK
  2. DIAZEPAM [Concomitant]
     Dosage: UNK MG, UNK
  3. PROCYCLIDINE [Concomitant]
     Dosage: UNK MG, UNK
  4. CLOZARIL [Suspect]
     Indication: SCHIZOPHRENIA
     Dosage: UNK MG, UNK
     Route: 048
     Dates: start: 20100927, end: 20101117

REACTIONS (6)
  - WHITE BLOOD CELL COUNT DECREASED [None]
  - AGRANULOCYTOSIS [None]
  - BODY TEMPERATURE INCREASED [None]
  - PLATELET COUNT DECREASED [None]
  - NEUTROPHIL COUNT DECREASED [None]
  - DECUBITUS ULCER [None]
